FAERS Safety Report 9888938 (Version 1)
Quarter: 2014Q1

REPORT INFORMATION
  Report Type: Report from Study
  Country: US (occurrence: US)
  Receive Date: 20140211
  Receipt Date: 20140211
  Transmission Date: 20141002
  Serious: Yes (Hospitalization)
  Sender: FDA-Public Use
  Company Number: US-GLAXOSMITHKLINE-B0966325A

PATIENT
  Age: 42 Year
  Sex: Female

DRUGS (6)
  1. ZANAMIVIR [Suspect]
     Indication: H1N1 INFLUENZA
     Route: 042
     Dates: start: 20140109, end: 20140123
  2. AZTREONAM [Suspect]
     Dosage: 2G TWICE PER DAY
     Route: 042
     Dates: end: 20140113
  3. LEVOFLOXACIN [Suspect]
     Route: 042
     Dates: start: 20140110, end: 20140121
  4. OSELTAMIVIR [Suspect]
     Indication: INFLUENZA
     Dosage: 75MG TWICE PER DAY
     Route: 048
     Dates: start: 20140104, end: 20140111
  5. VANCOMYCIN [Suspect]
     Dosage: 1250MG PER DAY
     Route: 042
     Dates: start: 20140104, end: 20140114
  6. TAMIFLU [Concomitant]

REACTIONS (2)
  - Neutropenia [Recovered/Resolved]
  - Renal failure acute [Not Recovered/Not Resolved]
